FAERS Safety Report 5589450-8 (Version None)
Quarter: 2008Q1

REPORT INFORMATION
  Report Type: 
  Country: None (occurrence: None)
  Receive Date: 20080109
  Receipt Date: 20071228
  Transmission Date: 20080703
  Serious: Yes (Hospitalization, Other)
  Sender: FDA-Public Use
  Company Number: 100#08#2007-05366

PATIENT
  Age: 55 Year
  Sex: Female

DRUGS (4)
  1. ISONIAZID [Suspect]
     Indication: SUICIDE ATTEMPT
     Dosage: ORAL
     Route: 048
  2. ETHAMBUTOL HYDROCHLORIDE [Concomitant]
  3. RIFAMPICIN [Concomitant]
  4. ALCOHOL (ETHANOL) (ETHANOL) [Concomitant]

REACTIONS (10)
  - APNOEA [None]
  - BLOOD CREATINE PHOSPHOKINASE INCREASED [None]
  - EPILEPSY [None]
  - HEART RATE INCREASED [None]
  - HEPATOTOXICITY [None]
  - INTENTIONAL OVERDOSE [None]
  - METABOLIC ACIDOSIS [None]
  - RESPIRATORY FAILURE [None]
  - SUICIDE ATTEMPT [None]
  - VOMITING [None]
